FAERS Safety Report 24661322 (Version 1)
Quarter: 2024Q4

REPORT INFORMATION
  Report Type: Spontaneous
  Country: US (occurrence: None)
  Receive Date: 20241125
  Receipt Date: 20241125
  Transmission Date: 20250115
  Serious: Yes (Other)
  Sender: Public
  Company Number: None

PATIENT
  Age: 93 Year
  Sex: Female

DRUGS (1)
  1. OXYBUTYNIN [Suspect]
     Active Substance: OXYBUTYNIN
     Indication: Bladder spasm
     Dosage: FREQUENCY : DAILY;?
     Route: 048
     Dates: start: 20141001, end: 20241016

REACTIONS (3)
  - Cough [None]
  - Choking [None]
  - Agitation [None]

NARRATIVE: CASE EVENT DATE: 20241016
